FAERS Safety Report 12081913 (Version 3)
Quarter: 2016Q1

REPORT INFORMATION
  Report Type: Report from Study
  Country: US (occurrence: US)
  Receive Date: 20160216
  Receipt Date: 20160322
  Transmission Date: 20160526
  Serious: Yes (Death, Hospitalization, Other)
  Sender: FDA-Public Use
  Company Number: US-AMGEN-USASL2016017081

PATIENT
  Age: 77 Year
  Sex: Male
  Weight: 76.19 kg

DRUGS (2)
  1. LUPRON [Concomitant]
     Active Substance: LEUPROLIDE ACETATE
     Dosage: 45 MG, UNK
     Route: 030
     Dates: start: 20150408
  2. PROLIA [Suspect]
     Active Substance: DENOSUMAB
     Indication: PRODUCT USED FOR UNKNOWN INDICATION
     Dosage: 60 MG, UNK
     Route: 058
     Dates: start: 20150414

REACTIONS (5)
  - Hepatic cancer [Unknown]
  - Asthenia [Unknown]
  - Lung neoplasm malignant [Unknown]
  - Dyspnoea [Unknown]
  - Death [Fatal]
